FAERS Safety Report 11293724 (Version 1)
Quarter: 2015Q3

REPORT INFORMATION
  Report Type: Spontaneous
  Country: CA (occurrence: CA)
  Receive Date: 20150722
  Receipt Date: 20150722
  Transmission Date: 20151125
  Serious: Yes (Other)
  Sender: FDA-Public Use
  Company Number: CA-GLAXOSMITHKLINE-CA2015GSK098923

PATIENT
  Sex: Female

DRUGS (2)
  1. MEKINIST [Suspect]
     Active Substance: TRAMETINIB DIMETHYL SULFOXIDE
     Indication: METASTATIC MALIGNANT MELANOMA
     Dosage: 2 MG, 1D
  2. TAFINLAR [Suspect]
     Active Substance: DABRAFENIB MESYLATE
     Indication: METASTATIC MALIGNANT MELANOMA
     Dosage: 150 MG, BID

REACTIONS (27)
  - Condition aggravated [Unknown]
  - Oral mucosal discolouration [Unknown]
  - Migraine [Unknown]
  - Flatulence [Not Recovered/Not Resolved]
  - Tooth infection [Unknown]
  - Gastrooesophageal reflux disease [Unknown]
  - Nausea [Unknown]
  - Cold sweat [Unknown]
  - Vomiting [Unknown]
  - Dysphagia [Unknown]
  - Pain [Unknown]
  - Peripheral swelling [Unknown]
  - Dyspepsia [Unknown]
  - Tooth disorder [Unknown]
  - Arthralgia [Unknown]
  - Pain in extremity [Unknown]
  - Malignant melanoma [Unknown]
  - Neck pain [Unknown]
  - Stomatitis [Unknown]
  - Skin discolouration [Unknown]
  - Adverse drug reaction [Unknown]
  - Incontinence [Not Recovered/Not Resolved]
  - Erythema [Unknown]
  - Malaise [Unknown]
  - Pharyngeal ulceration [Unknown]
  - Diarrhoea [Not Recovered/Not Resolved]
  - Rash [Unknown]
